FAERS Safety Report 10068693 (Version 1)
Quarter: 2014Q2

REPORT INFORMATION
  Report Type: Spontaneous
  Country: US (occurrence: US)
  Receive Date: 20140409
  Receipt Date: 20140409
  Transmission Date: 20141212
  Serious: No
  Sender: FDA-Public Use
  Company Number: US-MYLANLABS-2014S1000485

PATIENT
  Age: 62 Year
  Sex: Female
  Weight: 74.84 kg

DRUGS (5)
  1. METOPROLOL SUCCINATE EXTENDED-RELEASE TABLETS USP [Suspect]
     Indication: BLOOD PRESSURE
     Route: 048
     Dates: start: 20140104
  2. METOPROLOL SUCCINATE EXTENDED-RELEASE TABLETS USP [Suspect]
     Indication: BLOOD PRESSURE
     Route: 048
     Dates: start: 20140104
  3. HYDRALAZINE [Concomitant]
     Indication: BLOOD PRESSURE INCREASED
     Route: 048
  4. SPIRONOLACTONE [Concomitant]
     Indication: BLOOD PRESSURE
  5. AMLODIPINE [Concomitant]
     Indication: BLOOD PRESSURE

REACTIONS (3)
  - Drug ineffective [Not Recovered/Not Resolved]
  - Blood pressure increased [Not Recovered/Not Resolved]
  - Flushing [Not Recovered/Not Resolved]
